FAERS Safety Report 7637299-4 (Version None)
Quarter: 2011Q3

REPORT INFORMATION
  Report Type: 
  Country: None (occurrence: None)
  Receive Date: 20110726
  Receipt Date: 20110720
  Transmission Date: 20111222
  Serious: Yes (Other)
  Sender: FDA-Public Use
  Company Number: US-BAXTER-2011BH023879

PATIENT
  Age: 68 Year
  Sex: Male

DRUGS (2)
  1. CYCLOPHOSPHAMIDE [Suspect]
     Indication: SYMPATHETIC OPHTHALMIA
     Route: 065
  2. PREDNISONE [Concomitant]
     Indication: SYMPATHETIC OPHTHALMIA
     Route: 065

REACTIONS (1)
  - TREATMENT RELATED SECONDARY MALIGNANCY [None]
